FAERS Safety Report 11999059 (Version 1)
Quarter: 2016Q1

REPORT INFORMATION
  Report Type: Spontaneous
  Country: FR (occurrence: FR)
  Receive Date: 20160204
  Receipt Date: 20160204
  Transmission Date: 20160526
  Serious: Yes (Hospitalization)
  Sender: FDA-Public Use
  Company Number: FR-HOSPIRA-3152741

PATIENT
  Age: 3 Year
  Sex: Male
  Weight: 13.2 kg

DRUGS (2)
  1. ETOPOPHOS [Suspect]
     Active Substance: ETOPOSIDE PHOSPHATE
     Indication: CLEAR CELL SARCOMA OF THE KIDNEY
     Dates: start: 20150929, end: 20151001
  2. CARBOPLATIN HOSPIRA [Suspect]
     Active Substance: CARBOPLATIN
     Indication: CLEAR CELL SARCOMA OF THE KIDNEY
     Dates: start: 20150929, end: 20151001

REACTIONS (4)
  - Febrile bone marrow aplasia [Recovered/Resolved]
  - Conjunctivitis [Not Recovered/Not Resolved]
  - Abdominal pain [Recovered/Resolved]
  - Pyrexia [Recovered/Resolved]

NARRATIVE: CASE EVENT DATE: 20151010
